FAERS Safety Report 11128365 (Version 1)
Quarter: 2015Q2

REPORT INFORMATION
  Report Type: Spontaneous
  Country: DK (occurrence: DK)
  Receive Date: 20150521
  Receipt Date: 20150521
  Transmission Date: 20150821
  Serious: Yes (Other)
  Sender: FDA-Public Use
  Company Number: DK-WATSON-2015-10104

PATIENT
  Sex: Female

DRUGS (1)
  1. SIMVASTATIN ACTAVIS [Suspect]
     Active Substance: SIMVASTATIN
     Indication: HYPERCHOLESTEROLAEMIA
     Dosage: UNK (STYRKE: 40MG, ENGLISH: STRENGTH: 40MG)
     Route: 048
     Dates: start: 201204, end: 2012

REACTIONS (7)
  - Muscle atrophy [Not Recovered/Not Resolved]
  - Muscle spasms [Unknown]
  - Muscular weakness [Not Recovered/Not Resolved]
  - Kyphosis [Not Recovered/Not Resolved]
  - Back pain [Not Recovered/Not Resolved]
  - Spinal osteoarthritis [Not Recovered/Not Resolved]
  - Intervertebral disc degeneration [Not Recovered/Not Resolved]

NARRATIVE: CASE EVENT DATE: 2012
